FAERS Safety Report 13968361 (Version 1)
Quarter: 2017Q3

REPORT INFORMATION
  Report Type: Spontaneous
  Country: US (occurrence: US)
  Receive Date: 20170914
  Receipt Date: 20170914
  Transmission Date: 20171128
  Serious: No
  Sender: FDA-Public Use
  Company Number: US-LPDUSPRD-20160711

PATIENT
  Age: 26 Year
  Sex: Female

DRUGS (5)
  1. INJECTAFER [Suspect]
     Active Substance: FERRIC CARBOXYMALTOSE
     Dosage: 750 MG IN 100 ML NS IN 30 MIN
     Route: 042
     Dates: start: 20160802, end: 20160802
  2. LESTRIN FE 1-20 [Concomitant]
     Dosage: 1-20 MG-MCG
     Route: 048
  3. ULCERIS [Concomitant]
     Dosage: 9 MG
     Route: 048
  4. LIALDA [Concomitant]
     Active Substance: MESALAMINE
     Dosage: 1.2 GM (2 TABS)
     Route: 048
  5. ALLEGRA-D [Concomitant]
     Active Substance: FEXOFENADINE\PSEUDOEPHEDRINE
     Dosage: 60 TO 120 MG
     Route: 048

REACTIONS (1)
  - Nausea [Recovered/Resolved]

NARRATIVE: CASE EVENT DATE: 20160802
